FAERS Safety Report 13872139 (Version 3)
Quarter: 2018Q2

REPORT INFORMATION
  Report Type: Report from Study
  Country: CA (occurrence: CA)
  Receive Date: 20170816
  Receipt Date: 20180514
  Transmission Date: 20180711
  Serious: Yes (Other)
  Sender: FDA-Public Use
  Company Number: CA-ROCHE-1977949

PATIENT
  Age: 70 Year
  Sex: Female

DRUGS (24)
  1. AZITHROMYCINE [Concomitant]
     Active Substance: AZITHROMYCIN DIHYDRATE
     Route: 065
  2. PREDNISONE. [Concomitant]
     Active Substance: PREDNISONE
     Route: 065
     Dates: start: 201705
  3. ARAVA [Concomitant]
     Active Substance: LEFLUNOMIDE
  4. ATIVAN [Concomitant]
     Active Substance: LORAZEPAM
  5. ACTEMRA [Suspect]
     Active Substance: TOCILIZUMAB
     Indication: RHEUMATOID ARTHRITIS
     Route: 058
     Dates: start: 20170621
  6. ALENDRONATE [Concomitant]
     Active Substance: ALENDRONATE SODIUM
  7. D-TABS [Concomitant]
     Active Substance: CHOLECALCIFEROL
  8. FOLIC ACID. [Concomitant]
     Active Substance: FOLIC ACID
  9. HYDROXYCHLOROQUINE [Concomitant]
     Active Substance: HYDROXYCHLOROQUINE
  10. HYDROMORPHONE [Concomitant]
     Active Substance: HYDROMORPHONE
  11. IRBESARTAN. [Concomitant]
     Active Substance: IRBESARTAN
  12. METHOTREXATE. [Concomitant]
     Active Substance: METHOTREXATE
  13. VAGIFEM [Concomitant]
     Active Substance: ESTRADIOL
  14. OLESTYR [Concomitant]
  15. ACTEMRA [Suspect]
     Active Substance: TOCILIZUMAB
     Route: 058
     Dates: end: 2017
  16. PREDNISONE. [Concomitant]
     Active Substance: PREDNISONE
     Route: 065
  17. LEVOFLOXACINE [Concomitant]
     Active Substance: LEVOFLOXACIN
  18. TRAMADOL. [Concomitant]
     Active Substance: TRAMADOL
  19. PANTOLOC [Concomitant]
     Active Substance: PANTOPRAZOLE SODIUM
  20. PREDNISONE. [Concomitant]
     Active Substance: PREDNISONE
     Route: 065
  21. ACTEMRA [Suspect]
     Active Substance: TOCILIZUMAB
     Route: 058
  22. AMITRIPTYLINE [Concomitant]
     Active Substance: AMITRIPTYLINE
  23. PREDNISONE. [Concomitant]
     Active Substance: PREDNISONE
     Route: 065
  24. DULOXETINE. [Concomitant]
     Active Substance: DULOXETINE

REACTIONS (9)
  - Osteoarthritis [Unknown]
  - Back disorder [Unknown]
  - Pneumonitis [Unknown]
  - Polymyalgia rheumatica [Not Recovered/Not Resolved]
  - Dyspnoea [Unknown]
  - Peripheral swelling [Unknown]
  - Lung infection [Unknown]
  - Oxygen saturation decreased [Recovering/Resolving]
  - Nasopharyngitis [Not Recovered/Not Resolved]

NARRATIVE: CASE EVENT DATE: 201707
